FAERS Safety Report 5723946-0 (Version None)
Quarter: 2008Q2

REPORT INFORMATION
  Report Type: 
  Country: None (occurrence: None)
  Receive Date: 20080430
  Receipt Date: 20080422
  Transmission Date: 20081010
  Serious: Yes (Death)
  Sender: FDA-Public Use
  Company Number: US-BAXTER-2008BH003970

PATIENT
  Age: 45 Year
  Sex: Female

DRUGS (3)
  1. PHENERGAN [Suspect]
     Indication: DRUG USE FOR UNKNOWN INDICATION
     Dosage: DOSE UNIT:UNKNOWN
     Route: 042
  2. BENADRYL [Concomitant]
     Indication: PRURITUS
     Dosage: DOSE UNIT:UNKNOWN
     Route: 042
  3. OPIOIDS [Concomitant]
     Indication: PROCEDURAL PAIN
     Dosage: DOSE UNIT:UNKNOWN
     Route: 065

REACTIONS (4)
  - ANAPHYLACTIC REACTION [None]
  - ANOXIA [None]
  - CARDIAC ARREST [None]
  - POST PROCEDURAL COMPLICATION [None]
